FAERS Safety Report 8774637 (Version 4)
Quarter: 2013Q2

REPORT INFORMATION
  Report Type: Spontaneous
  Country: CZ (occurrence: CZ)
  Receive Date: 20120907
  Receipt Date: 20130412
  Transmission Date: 20140414
  Serious: Yes (Hospitalization)
  Sender: FDA-Public Use
  Company Number: CZ-AMGEN-CZESP2012055290

PATIENT
  Age: 56 Year
  Sex: Female

DRUGS (9)
  1. ENBREL [Suspect]
     Indication: RHEUMATOID ARTHRITIS
     Dosage: 25MG, TWICE PER WEEK ON MONDAY AND THUERSDAY
     Route: 058
     Dates: start: 20050906, end: 20120619
  2. MEDROL                             /00049601/ [Concomitant]
     Dosage: UNK
  3. ZOLOFT [Concomitant]
     Dosage: UNK
  4. ACIDUM FOLICUM [Concomitant]
     Dosage: UNK
  5. FORMOTEROL [Concomitant]
     Dosage: UNK
  6. METHOTREXAT                        /00113801/ [Concomitant]
     Dosage: UNK
  7. MOVALIS [Concomitant]
     Dosage: UNK
  8. RIVOTRIL [Concomitant]
     Dosage: UNK
  9. MAGNESII LACTICI [Concomitant]
     Dosage: UNK

REACTIONS (1)
  - Anaplastic astrocytoma [Recovering/Resolving]
